FAERS Safety Report 8317917 (Version 3)
Quarter: 2013Q1

REPORT INFORMATION
  Report Type: Report from Study
  Country: DE (occurrence: DE)
  Receive Date: 20120102
  Receipt Date: 20130213
  Transmission Date: 20140127
  Serious: Yes (Hospitalization)
  Sender: FDA-Public Use
  Company Number: DE-ROCHE-1025500

PATIENT
  Age: 63 Year
  Sex: Male
  Weight: 77.9 kg

DRUGS (11)
  1. MYCOPHENOLATE MOFETIL [Suspect]
     Indication: RENAL TRANSPLANT
     Dosage: LAST DOSE PRIOR TO SAE 10/JAN/2012
     Route: 048
     Dates: start: 20110413, end: 20120111
  2. BASILIXIMAB [Suspect]
     Indication: RENAL TRANSPLANT
     Dosage: LAST DOSE PRIOR TO SAE 17/APR/2011
     Route: 042
     Dates: start: 20110413
  3. TACROLIMUS [Suspect]
     Indication: RENAL TRANSPLANT
     Dosage: LAST DOSE PRIOR TO SAE 10/DEC/2011
     Route: 048
     Dates: start: 20111210
  4. TACROLIMUS [Suspect]
     Dosage: LAST DOSE PRIOR TO SAE 10/JAN/2012
     Route: 048
     Dates: start: 20110413
  5. PREDNISOLONE [Suspect]
     Indication: RENAL TRANSPLANT
     Dosage: DRUG REPORTED:SOLU DECORTIN,LAST DOSE PRIOR TO SAE 16/DEC/2011
     Route: 048
     Dates: start: 20110413
  6. METFORMIN [Concomitant]
     Route: 065
  7. FLUVASTATIN [Concomitant]
     Route: 065
  8. PANTOPRAZOL [Concomitant]
     Route: 065
  9. BICANORM [Concomitant]
     Route: 065
  10. DEKRISTOL [Concomitant]
     Dosage: 1 DOSE FORM /MONTH
     Route: 065
  11. REPAGLINID [Concomitant]
     Route: 065

REACTIONS (1)
  - Transplant rejection [Recovered/Resolved]
